FAERS Safety Report 8354162-4 (Version None)
Quarter: 2012Q2

REPORT INFORMATION
  Report Type: 
  Country: None (occurrence: None)
  Receive Date: 20120511
  Receipt Date: 20120508
  Transmission Date: 20120825
  Serious: Yes (Hospitalization)
  Sender: FDA-Public Use
  Company Number: JP-PFIZER INC-2012087787

PATIENT
  Age: 82 Year
  Sex: Male

DRUGS (13)
  1. MEDROL [Suspect]
     Indication: VASCULITIS
     Dosage: 10 MG/DAY
     Route: 048
     Dates: end: 20120406
  2. SULFAMETHOXAZOLE AND TRIMETHOPRIM [Suspect]
     Indication: ORAL FUNGAL INFECTION
     Dosage: UNK
     Route: 048
     Dates: end: 20120406
  3. PREDNISOLONE [Concomitant]
     Dosage: 10 MG/DAY
  4. TAMSULOSIN HCL [Concomitant]
     Indication: BENIGN PROSTATIC HYPERPLASIA
     Dosage: 0.2 MG/DAY
     Route: 048
     Dates: end: 20120406
  5. LIPITOR [Concomitant]
     Indication: HYPERCHOLESTEROLAEMIA
     Dosage: 10 MG/DAY
     Route: 048
     Dates: end: 20120406
  6. MEDICON [Concomitant]
     Indication: COUGH
     Dosage: 15 MG, AS NEEDED
     Route: 048
     Dates: end: 20120406
  7. SELBEX [Concomitant]
     Indication: GASTRITIS
     Dosage: 50 MG/DAY
     Route: 048
     Dates: end: 20120406
  8. PURSENNIDE [Concomitant]
     Indication: CONSTIPATION
     Dosage: 12 MG/DAY
     Route: 048
     Dates: end: 20120406
  9. LANSOPRAZOLE [Concomitant]
     Indication: GASTRITIS
     Dosage: 30 MG/DAY
     Route: 048
     Dates: end: 20120406
  10. NOVORAPID [Concomitant]
     Dosage: 0-12 UNITS
  11. DUTASTERIDE [Concomitant]
     Indication: BENIGN PROSTATIC HYPERPLASIA
     Dosage: 0.5 MG/DAY
     Route: 048
     Dates: end: 20120406
  12. LOXONIN [Concomitant]
     Indication: COMPRESSION FRACTURE
     Dosage: 120 MG/DAY
     Route: 048
     Dates: end: 20120406
  13. DIFLUCAN [Suspect]
     Indication: ORAL FUNGAL INFECTION
     Dosage: UNK
     Dates: end: 20120401

REACTIONS (1)
  - HYPERGLYCAEMIA [None]
